FAERS Safety Report 22616186 (Version 1)
Quarter: 2023Q2

REPORT INFORMATION
  Report Type: Spontaneous
  Country: CN (occurrence: CN)
  Receive Date: 20230619
  Receipt Date: 20230619
  Transmission Date: 20230721
  Serious: Yes (Hospitalization, Other)
  Sender: FDA-Public Use
  Company Number: CN-Calliditas-2023CAL00552

PATIENT

DRUGS (1)
  1. ALBUTEROL\BUDESONIDE [Suspect]
     Active Substance: ALBUTEROL\BUDESONIDE
     Indication: Myocardial injury
     Route: 055

REACTIONS (4)
  - Atrial fibrillation [Unknown]
  - Cardiac failure [Unknown]
  - Respiratory failure [Unknown]
  - Haemorrhage [Unknown]
